FAERS Safety Report 9857557 (Version 7)
Quarter: 2015Q3

REPORT INFORMATION
  Report Type: Report from Study
  Country: AU (occurrence: AU)
  Receive Date: 20140131
  Receipt Date: 20150701
  Transmission Date: 20151125
  Serious: Yes (Other)
  Sender: FDA-Public Use
  Company Number: PHHY2011AU77465

PATIENT
  Age: 35 Year
  Sex: Male
  Weight: 95 kg

DRUGS (19)
  1. CLOZARIL [Suspect]
     Active Substance: CLOZAPINE
     Dosage: 75 MG, DAILY (25 MG MRG, 50 MG NIGHT)
     Route: 065
     Dates: start: 20140222
  2. ESCITALOPRAM [Concomitant]
     Active Substance: ESCITALOPRAM OXALATE
     Indication: PRODUCT USED FOR UNKNOWN INDICATION
     Dosage: 20 MG, QD
     Route: 065
  3. SERTRALINE [Concomitant]
     Active Substance: SERTRALINE HYDROCHLORIDE
     Indication: SCHIZOPHRENIA
     Dosage: 200 MG, AT MORNING
     Route: 048
  4. ZUCLOPENTHIXOL [Concomitant]
     Active Substance: ZUCLOPENTHIXOL
     Dosage: 400 MG, BIW
     Route: 030
  5. ZUCLOPENTHIXOL DECANOATE [Concomitant]
     Active Substance: ZUCLOPENTHIXOL DECANOATE
     Indication: PSYCHOTIC DISORDER
     Dosage: 250 MG, BIW
     Route: 030
  6. CLOZARIL [Suspect]
     Active Substance: CLOZAPINE
     Dosage: 200 MG, QD
     Route: 065
  7. AMISULPRIDE [Concomitant]
     Active Substance: AMISULPRIDE
     Indication: PSYCHOTIC DISORDER
     Dosage: 400 MG, BID
     Route: 065
  8. ZUCLOPENTHIXOL DECANOATE [Concomitant]
     Active Substance: ZUCLOPENTHIXOL DECANOATE
     Indication: SCHIZOPHRENIA
     Dosage: 400 MG, BIW
     Route: 030
  9. ATENOLOL. [Concomitant]
     Active Substance: ATENOLOL
     Indication: PSYCHOTIC DISORDER
     Dosage: 25 MG, QD
     Route: 065
     Dates: start: 20130212
  10. ZUCLOPENTHIXOL [Concomitant]
     Active Substance: ZUCLOPENTHIXOL
     Indication: PSYCHOTIC DISORDER
     Dosage: 10 MG, BID
     Route: 048
  11. QUETIAPINE [Concomitant]
     Active Substance: QUETIAPINE
     Indication: PSYCHOTIC DISORDER
     Dosage: 600 MG, AT MORNING
     Route: 065
  12. SERTRALINE [Concomitant]
     Active Substance: SERTRALINE HYDROCHLORIDE
     Indication: PSYCHOTIC DISORDER
     Dosage: 150 MG, AT MORNING
     Route: 048
  13. OLANZAPINE. [Concomitant]
     Active Substance: OLANZAPINE
     Indication: PSYCHOTIC DISORDER
     Dosage: 5 MG
     Route: 065
  14. CANDESARTAN [Concomitant]
     Active Substance: CANDESARTAN
     Indication: PRODUCT USED FOR UNKNOWN INDICATION
     Dosage: 4 MG, QD
     Route: 065
     Dates: start: 20110621
  15. CITALOPRAM [Concomitant]
     Active Substance: CITALOPRAM HYDROBROMIDE
     Indication: PRODUCT USED FOR UNKNOWN INDICATION
     Route: 065
  16. CLOZARIL [Suspect]
     Active Substance: CLOZAPINE
     Indication: SCHIZOAFFECTIVE DISORDER
     Dosage: UNK
     Route: 065
     Dates: start: 20050111, end: 201108
  17. BISOPROLOL [Concomitant]
     Active Substance: BISOPROLOL
     Indication: PRODUCT USED FOR UNKNOWN INDICATION
     Dosage: 2.5 MG, QD
     Route: 065
  18. ATENOLOL. [Concomitant]
     Active Substance: ATENOLOL
     Dosage: 50 MG,MORNING
     Route: 065
  19. ARIPIPRAZOLE. [Concomitant]
     Active Substance: ARIPIPRAZOLE
     Indication: SCHIZOPHRENIA
     Dosage: 30 MG, AT MORNING
     Route: 048

REACTIONS (27)
  - Dyspnoea exertional [Unknown]
  - Electrocardiogram PR prolongation [Unknown]
  - Atrioventricular block first degree [Unknown]
  - Cardiomyopathy [Unknown]
  - Blood lactate dehydrogenase increased [Unknown]
  - Quality of life decreased [Unknown]
  - Conduction disorder [Unknown]
  - Blood cholesterol increased [Unknown]
  - Electrocardiogram QT prolonged [Unknown]
  - Lymphocyte count decreased [Unknown]
  - Aspartate aminotransferase increased [Recovered/Resolved]
  - Tachycardia [Unknown]
  - Anion gap increased [Recovered/Resolved]
  - Ejection fraction decreased [Recovered/Resolved]
  - Psychotic disorder [Unknown]
  - Diastolic dysfunction [Unknown]
  - Chest pain [Not Recovered/Not Resolved]
  - C-reactive protein increased [Recovered/Resolved]
  - Malaise [Unknown]
  - Feeling abnormal [Unknown]
  - Lipids increased [Unknown]
  - Left ventricular dysfunction [Recovered/Resolved]
  - Mitral valve incompetence [Unknown]
  - Heart rate increased [Recovered/Resolved]
  - Therapeutic response decreased [Unknown]
  - Schizophrenia [Unknown]
  - Blood glucose increased [Unknown]

NARRATIVE: CASE EVENT DATE: 20110523
